FAERS Safety Report 10441550 (Version 1)
Quarter: 2014Q3

REPORT INFORMATION
  Report Type: Spontaneous
  Country: US (occurrence: US)
  Receive Date: 20140908
  Receipt Date: 20140908
  Transmission Date: 20150326
  Serious: Yes (Hospitalization, Other)
  Sender: FDA-Public Use
  Company Number: US-RB PHARMACEUTICALS LIMITED-RB-71115-2014

PATIENT
  Age: 0 Year
  Sex: Female
  Weight: 4.13 kg

DRUGS (4)
  1. HYDROCODONE [Suspect]
     Active Substance: HYDROCODONE
     Dosage: UNK
     Route: 063
     Dates: start: 20140409, end: 20140423
  2. HYDROCODONE [Suspect]
     Active Substance: HYDROCODONE
     Indication: PATELLA FRACTURE
     Dosage: UNK
     Route: 064
  3. SUBOXONE [Suspect]
     Active Substance: BUPRENORPHINE HYDROCHLORIDE\NALOXONE HYDROCHLORIDE
     Indication: DRUG DEPENDENCE
     Dosage: 8 MG, BID
     Route: 064
     Dates: start: 201306, end: 20130809
  4. BUPRENORPHINE [Suspect]
     Active Substance: BUPRENORPHINE
     Indication: DRUG DEPENDENCE
     Dosage: 8 MG, BID
     Route: 064
     Dates: start: 20130809

REACTIONS (6)
  - Shoulder dystocia [Recovered/Resolved]
  - Drug withdrawal syndrome neonatal [Unknown]
  - Neonatal aspiration [Recovered/Resolved]
  - Foetal exposure during pregnancy [Recovered/Resolved]
  - Exposure during breast feeding [Recovered/Resolved]
  - Macrosomia [Unknown]

NARRATIVE: CASE EVENT DATE: 201306
